FAERS Safety Report 9248886 (Version 1)
Quarter: 2013Q1

REPORT INFORMATION
  Report Type: Spontaneous
  Country: US (occurrence: None)
  Receive Date: 20130305
  Receipt Date: 20130305
  Transmission Date: 20140127
  Serious: Yes (Other)
  Sender: FDA-Public Use
  Company Number: 163-21880-12100340

PATIENT
  Age: 84 Year
  Sex: Female

DRUGS (5)
  1. REVLIMID [Suspect]
     Indication: PLASMA CELL MYELOMA
     Dosage: 10 MG, 28 AND 28 D, PO
     Route: 048
     Dates: start: 20120905
  2. LIPITOR (ATORVASTATIN) (UNKNOWN) [Concomitant]
  3. SYNTHROID (LEVOTHYROXINE SODIUM) (UNKNOWN) [Concomitant]
  4. ASPIRIN (ACETYLSALICYLIC ACID) (UNKNOWN) (ACETYLSALICYLIC ACID) [Concomitant]
  5. MULTIVITAMINS (MULTIVITAMINS) (UNKNOWN) [Concomitant]

REACTIONS (1)
  - White blood cell count decreased [None]
